FAERS Safety Report 8125675-5 (Version None)
Quarter: 2012Q1

REPORT INFORMATION
  Report Type: 
  Country: None (occurrence: None)
  Receive Date: 20120209
  Receipt Date: 20120207
  Transmission Date: 20120608
  Serious: Yes (Other)
  Sender: FDA-Public Use
  Company Number: US-PFIZER INC-2012008408

PATIENT
  Sex: Male

DRUGS (3)
  1. DILANTIN-125 [Suspect]
     Indication: CONVULSION
     Dosage: 500 MG, DAILY
     Dates: start: 19890101
  2. ACETAMINOPHEN [Suspect]
     Indication: NASOPHARYNGITIS
     Dosage: UNK
  3. DILANTIN-125 [Suspect]
     Dosage: 500 MG ONE DAY AND 600 MG OTHER DAY, UNK

REACTIONS (7)
  - DRUG INEFFECTIVE [None]
  - CONVULSION [None]
  - PETIT MAL EPILEPSY [None]
  - NASOPHARYNGITIS [None]
  - ANTICONVULSANT DRUG LEVEL DECREASED [None]
  - HYPOGLYCAEMIA [None]
  - GRAND MAL CONVULSION [None]
